FAERS Safety Report 4608768-6 (Version None)
Quarter: 2005Q1

REPORT INFORMATION
  Report Type: 
  Country: None (occurrence: None)
  Receive Date: 20050309
  Receipt Date: 20050220
  Transmission Date: 20050727
  Serious: Yes (Hospitalization)
  Sender: FDA-Public Use
  Company Number: EWC050242817

PATIENT
  Age: 61 Year
  Sex: Male

DRUGS (1)
  1. XIGRIS [Suspect]
     Indication: CANDIDA SEPSIS
     Dates: start: 20050213, end: 20050217

REACTIONS (1)
  - DERMATITIS BULLOUS [None]
